FAERS Safety Report 7350176-1 (Version None)
Quarter: 2011Q1

REPORT INFORMATION
  Report Type: 
  Country: None (occurrence: None)
  Receive Date: 20110314
  Receipt Date: 20110308
  Transmission Date: 20110831
  Serious: Yes (Hospitalization)
  Sender: FDA-Public Use
  Company Number: B0700843A

PATIENT
  Age: 55 Year
  Sex: Male
  Weight: 80.9 kg

DRUGS (2)
  1. AVANDIA [Suspect]
     Indication: DIABETES MELLITUS
     Dosage: 8MG PER DAY
     Route: 048
     Dates: start: 20060831, end: 20070224
  2. AVANDAMET [Suspect]
     Indication: DIABETES MELLITUS
     Route: 048
     Dates: start: 20051026

REACTIONS (5)
  - HEART RATE INCREASED [None]
  - CORONARY ARTERY BYPASS [None]
  - ISCHAEMIC CARDIOMYOPATHY [None]
  - INTRACARDIAC THROMBUS [None]
  - CARDIAC FAILURE CONGESTIVE [None]
